FAERS Safety Report 8033975-2 (Version None)
Quarter: 2012Q1

REPORT INFORMATION
  Report Type: 
  Country: None (occurrence: None)
  Receive Date: 20120110
  Receipt Date: 20120105
  Transmission Date: 20120608
  Serious: Yes (Hospitalization, Other)
  Sender: FDA-Public Use
  Company Number: US-MERCK-1104USA02660

PATIENT
  Age: 66 Year
  Sex: Female

DRUGS (4)
  1. FOSAMAX [Suspect]
     Route: 048
     Dates: start: 20090701, end: 20100106
  2. FOSAMAX [Suspect]
     Indication: OSTEOPENIA
     Route: 048
     Dates: start: 20031201, end: 20060101
  3. VITAMIN E [Concomitant]
     Route: 065
     Dates: start: 20000401, end: 20090501
  4. FOSAMAX PLUS D [Suspect]
     Indication: OSTEOPENIA
     Route: 048
     Dates: start: 20070501, end: 20090601

REACTIONS (12)
  - TOOTH DISORDER [None]
  - FALL [None]
  - LIPOMA [None]
  - MALIGNANT MELANOMA [None]
  - TOOTH LOSS [None]
  - LOW TURNOVER OSTEOPATHY [None]
  - BLOOD CHOLESTEROL INCREASED [None]
  - FEMUR FRACTURE [None]
  - MUSCULOSKELETAL DISORDER [None]
  - FRACTURE DELAYED UNION [None]
  - HYPOTHYROIDISM [None]
  - ADVERSE EVENT [None]
